FAERS Safety Report 22329782 (Version 1)
Quarter: 2023Q2

REPORT INFORMATION
  Report Type: Spontaneous
  Country: US (occurrence: None)
  Receive Date: 20230517
  Receipt Date: 20230517
  Transmission Date: 20230722
  Serious: No
  Sender: FDA-Public Use
  Company Number: US-ROCHE-3196034

PATIENT
  Sex: Female

DRUGS (1)
  1. ACTEMRA [Suspect]
     Active Substance: TOCILIZUMAB
     Indication: Giant cell arteritis
     Dosage: FORM OF ADMIN: VIAL?STRENGTH: 400MG/20ML
     Route: 042
     Dates: start: 20220907

REACTIONS (5)
  - Fatigue [Unknown]
  - Headache [Unknown]
  - Dissociation [Unknown]
  - Aphasia [Unknown]
  - Hypersomnia [Unknown]
